FAERS Safety Report 5312049-5 (Version None)
Quarter: 2007Q2

REPORT INFORMATION
  Report Type: 
  Country: None (occurrence: None)
  Receive Date: 20070430
  Receipt Date: 20060621
  Transmission Date: 20071010
  Serious: No
  Sender: FDA-Public Use
  Company Number: 2006UW13204

PATIENT
  Age: 57 Year
  Sex: Female
  Weight: 88.5 kg

DRUGS (6)
  1. NEXIUM [Suspect]
     Indication: GASTROOESOPHAGEAL REFLUX DISEASE
     Route: 048
     Dates: start: 19980101, end: 20051201
  2. NEXIUM [Suspect]
     Dosage: INCREASED TO 40 MG BID TO TREAT ULCER...TRIED FOR SEVERAL MONTHS
     Route: 048
     Dates: start: 20051201
  3. NEXIUM [Suspect]
     Dosage: AFTER TRYING INCREASED DOSE TO 40 MG BID TO TREAT ULCER, REVERTED BACK TO 40 MG QD
     Route: 048
     Dates: start: 20060101
  4. HORMONES [Concomitant]
  5. VITAMIN E [Concomitant]
  6. PRAVACHOL [Concomitant]
     Route: 048
     Dates: start: 20060201

REACTIONS (3)
  - ABDOMINAL PAIN [None]
  - ABDOMINAL PAIN UPPER [None]
  - ULCER [None]
